FAERS Safety Report 13151096 (Version 1)
Quarter: 2017Q1

REPORT INFORMATION
  Report Type: Spontaneous
  Country: US (occurrence: US)
  Receive Date: 20170122
  Receipt Date: 20170122
  Transmission Date: 20170428
  Serious: Yes (Hospitalization)
  Sender: FDA-Public Use
  Company Number: None

PATIENT
  Age: 76 Year
  Sex: Male
  Weight: 90 kg

DRUGS (1)
  1. LOSARTAN. [Suspect]
     Active Substance: LOSARTAN
     Route: 048
     Dates: start: 20170103, end: 20170121

REACTIONS (3)
  - Respiratory failure [None]
  - Anaphylactic reaction [None]
  - Swollen tongue [None]

NARRATIVE: CASE EVENT DATE: 20170121
